FAERS Safety Report 4431178-1 (Version None)
Quarter: 2004Q3

REPORT INFORMATION
  Report Type: 
  Country: None (occurrence: None)
  Receive Date: 20040824
  Receipt Date: 20040702
  Transmission Date: 20050211
  Serious: Yes (Hospitalization, Other)
  Sender: FDA-Public Use
  Company Number: PHNU2004DE02370

PATIENT
  Sex: Male
  Weight: 72 kg

DRUGS (3)
  1. LAMISIL [Suspect]
     Indication: FUNGAL SKIN INFECTION
     Dosage: 250 MG, QD
     Route: 048
     Dates: start: 20040101, end: 20040101
  2. MARCUMAR [Suspect]
     Indication: ARRHYTHMIA
  3. SOTALOL HCL [Suspect]
     Indication: ARRHYTHMIA

REACTIONS (5)
  - AGRANULOCYTOSIS [None]
  - BICYTOPENIA [None]
  - FEBRILE INFECTION [None]
  - LEUKOPENIA [None]
  - THROMBOCYTOPENIA [None]
